FAERS Safety Report 12582154 (Version 1)
Quarter: 2016Q3

REPORT INFORMATION
  Report Type: Spontaneous
  Country: US (occurrence: None)
  Receive Date: 20160721
  Receipt Date: 20160721
  Transmission Date: 20161109
  Serious: No
  Sender: FDA-Public Use
  Company Number: None

PATIENT
  Sex: Female

DRUGS (2)
  1. XANAX [Suspect]
     Active Substance: ALPRAZOLAM
  2. OXYCODONE [Suspect]
     Active Substance: OXYCODONE

REACTIONS (4)
  - Depression [None]
  - Fatigue [None]
  - Insomnia [None]
  - Constipation [None]
